FAERS Safety Report 5134453-0 (Version None)
Quarter: 2006Q4

REPORT INFORMATION
  Report Type: 
  Country: None (occurrence: None)
  Receive Date: 20061023
  Receipt Date: 20061023
  Transmission Date: 20070319
  Serious: Yes (Hospitalization)
  Sender: FDA-Public Use
  Company Number: None

PATIENT
  Sex: Female

DRUGS (3)
  1. GLEEVEC [Suspect]
     Indication: GLIOBLASTOMA MULTIFORME
     Dosage: 500 MG QD
     Dates: start: 20060503, end: 20061004
  2. HYDROXYUREA [Suspect]
     Dosage: 500 MG BID
     Dates: start: 20060503, end: 20061004
  3. RAD001 [Suspect]
     Indication: GLIOBLASTOMA MULTIFORME
     Dosage: 2.5 MG QOD
     Dates: start: 20060503, end: 20061004

REACTIONS (6)
  - FATIGUE [None]
  - HAEMORRHAGE [None]
  - HEADACHE [None]
  - LETHARGY [None]
  - NEOPLASM PROGRESSION [None]
  - NERVOUS SYSTEM DISORDER [None]
